FAERS Safety Report 5344420-X (Version None)
Quarter: 2007Q2

REPORT INFORMATION
  Report Type: 
  Country: None (occurrence: None)
  Receive Date: 20070604
  Receipt Date: 20070530
  Transmission Date: 20071010
  Serious: Yes (Life-Threatening)
  Sender: FDA-Public Use
  Company Number: CA-BOEHRINGER INGELHEIM PHARMACEUTICALS, INC.-2007-CN-00357CN

PATIENT
  Sex: Female

DRUGS (4)
  1. MICARDIS [Suspect]
     Dates: start: 20061106
  2. FOSAMAX [Concomitant]
  3. LOSEC [Concomitant]
  4. CALCIUM + VIT D [Concomitant]

REACTIONS (1)
  - METASTASES TO BONE [None]
